FAERS Safety Report 5718546-2 (Version None)
Quarter: 2008Q2

REPORT INFORMATION
  Report Type: 
  Country: None (occurrence: None)
  Receive Date: 20080425
  Receipt Date: 20080421
  Transmission Date: 20081010
  Serious: Yes (Hospitalization)
  Sender: FDA-Public Use
  Company Number: PHBS2008FR04162

PATIENT
  Age: 19 Month
  Sex: Female
  Weight: 9.5 kg

DRUGS (2)
  1. PARLODEL [Suspect]
     Dosage: UNK, UNK
     Route: 048
     Dates: start: 20080311, end: 20080311
  2. PROPOFAN [Suspect]
     Route: 048
     Dates: start: 20070311, end: 20070311

REACTIONS (7)
  - ACCIDENTAL DRUG INTAKE BY CHILD [None]
  - BLOOD PRESSURE INCREASED [None]
  - COMA [None]
  - DRUG TOXICITY [None]
  - HEART RATE INCREASED [None]
  - LOCKED-IN SYNDROME [None]
  - SOMNOLENCE [None]
